FAERS Safety Report 8303333 (Version 2)
Quarter: 2014Q1

REPORT INFORMATION
  Report Type: Spontaneous
  Country: US (occurrence: US)
  Receive Date: 20111220
  Receipt Date: 20140122
  Transmission Date: 20141002
  Serious: No
  Sender: FDA-Public Use
  Company Number: US-JNJFOC-20111205506

PATIENT
  Sex: Female
  Weight: 81.65 kg

DRUGS (10)
  1. DURAGESIC [Suspect]
     Indication: SURGERY
     Route: 062
  2. DURAGESIC [Suspect]
     Indication: RHEUMATOID ARTHRITIS
     Route: 062
  3. DURAGESIC [Suspect]
     Indication: OSTEOARTHRITIS
     Route: 062
  4. AMITRIPTYLINE [Concomitant]
     Indication: SLEEP DISORDER THERAPY
     Route: 048
     Dates: start: 1990
  5. OMEPRAZOLE [Concomitant]
     Indication: HIATUS HERNIA
  6. CARISOPRODOL [Concomitant]
     Indication: MUSCLE SPASMS
     Route: 048
  7. UNKNOWN MEDICATION [Concomitant]
     Indication: PANIC ATTACK
     Route: 048
     Dates: start: 1990
  8. TRIAMTERENE [Concomitant]
     Indication: FLUID RETENTION
     Route: 048
     Dates: start: 1990
  9. PRAVASTATIN [Concomitant]
     Indication: BLOOD CHOLESTEROL
     Route: 048
     Dates: start: 1990
  10. LYRICA [Concomitant]
     Indication: FIBROMYALGIA
     Route: 048
     Dates: start: 1990

REACTIONS (5)
  - Product adhesion issue [Unknown]
  - Wrong technique in drug usage process [Not Recovered/Not Resolved]
  - Application site rash [Recovered/Resolved]
  - Inadequate analgesia [Not Recovered/Not Resolved]
  - Drug administered at inappropriate site [Recovered/Resolved]
